FAERS Safety Report 6999288-2 (Version None)
Quarter: 2010Q3

REPORT INFORMATION
  Report Type: 
  Country: None (occurrence: None)
  Receive Date: 20100920
  Receipt Date: 20100309
  Transmission Date: 20110219
  Serious: No
  Sender: FDA-Public Use
  Company Number: US-ASTRAZENECA-2008UW18331

PATIENT
  Age: 18022 Day
  Sex: Female

DRUGS (1)
  1. SEROQUEL [Suspect]
     Route: 048
     Dates: start: 20080221

REACTIONS (3)
  - INTENTIONAL DRUG MISUSE [None]
  - NIGHT SWEATS [None]
  - PARAESTHESIA [None]
